FAERS Safety Report 10705170 (Version 20)
Quarter: 2022Q3

REPORT INFORMATION
  Report Type: Spontaneous
  Country: US (occurrence: US)
  Receive Date: 20150112
  Receipt Date: 20220829
  Transmission Date: 20221026
  Serious: Yes (Hospitalization, Other)
  Sender: FDA-Public Use
  Company Number: US-PFIZER INC-2015010578

PATIENT
  Age: 58 Year
  Sex: Female
  Weight: 68 kg

DRUGS (37)
  1. LYRICA [Suspect]
     Active Substance: PREGABALIN
     Indication: Complex regional pain syndrome
     Dosage: 150 MG, 3X/DAY (1 CAPSULE, 3 TIMES A DAY, 90 DAYS, QUANTITY: 270 CAPSULES)
     Route: 048
     Dates: start: 2007
  2. LYRICA [Suspect]
     Active Substance: PREGABALIN
     Indication: Neuropathy peripheral
     Dosage: UNK
     Route: 065
  3. LYRICA [Suspect]
     Active Substance: PREGABALIN
     Indication: Diabetic neuropathy
     Dosage: 150 MG, 3X/DAY
     Route: 048
  4. LYRICA [Suspect]
     Active Substance: PREGABALIN
     Indication: Diabetes mellitus
  5. LYRICA [Suspect]
     Active Substance: PREGABALIN
     Indication: Hyperglycaemia
  6. LYRICA [Suspect]
     Active Substance: PREGABALIN
     Indication: Leg amputation
  7. MORPHINE [Concomitant]
     Active Substance: MORPHINE
     Indication: Breakthrough pain
     Dosage: 15 MG, AS NEEDED UP TO 5 TIMES A DAY
     Route: 048
     Dates: start: 201410
  8. MORPHINE [Concomitant]
     Active Substance: MORPHINE
     Dosage: 15 MG, AS NEEDED (EVERY 4 HRS)
  9. MORPHINE SULFATE [Concomitant]
     Active Substance: MORPHINE SULFATE
     Dosage: 15 MG, AS NEEDED (EVERY 4 HRS)
     Route: 048
  10. FUROSEMIDE [Concomitant]
     Active Substance: FUROSEMIDE
     Indication: Swelling
     Dosage: 40 MG, 2X/DAY
     Route: 048
     Dates: start: 2001
  11. KAON-CL [Concomitant]
     Indication: Electrolyte substitution therapy
     Dosage: 8 MEQ, 2X/DAY
     Dates: start: 2002
  12. COUMADIN [Concomitant]
     Active Substance: WARFARIN SODIUM
     Indication: Thrombosis prophylaxis
     Dosage: 5 MG, CYCLIC ( 5 DAYS A WEEK)
     Dates: start: 2001
  13. COUMADIN [Concomitant]
     Active Substance: WARFARIN SODIUM
     Dosage: 6MG (UNKNOWN FREQUENCY) 2 DAYS A WEEK
     Dates: start: 2001
  14. COUMADIN [Concomitant]
     Active Substance: WARFARIN SODIUM
     Dosage: 4 MG, 1X/DAY (EXCEPT ON SATURDAY)
     Route: 048
     Dates: start: 20160531
  15. SIMVASTATIN [Concomitant]
     Active Substance: SIMVASTATIN
     Indication: Blood cholesterol increased
     Dosage: 20 MG, DAILY
     Route: 048
     Dates: start: 2002
  16. VITAMIN D [Concomitant]
     Active Substance: VITAMIN D NOS
     Dosage: 5000 IU
     Dates: start: 2012
  17. FISH OIL [Concomitant]
     Active Substance: FISH OIL
     Indication: Blood triglycerides abnormal
     Dosage: 1200 IU
     Dates: start: 2012
  18. ZOCOR [Concomitant]
     Active Substance: SIMVASTATIN
     Dosage: UNK
  19. POTASSIUM CHLORIDE [Concomitant]
     Active Substance: POTASSIUM CHLORIDE
     Dosage: 8 MEQ, 3X/DAY
     Route: 048
  20. POTASSIUM CHLORIDE [Concomitant]
     Active Substance: POTASSIUM CHLORIDE
     Dosage: 8 MEQ, 2X/DAY
     Route: 048
  21. FLEXERIL [Concomitant]
     Active Substance: CYCLOBENZAPRINE HYDROCHLORIDE
     Dosage: UNK
  22. DIAZEPAM [Concomitant]
     Active Substance: DIAZEPAM
     Dosage: 10 MG, AS NEEDED  (1 TABLET AS NEEDED ORALLY TWICE A DAY)
     Route: 048
  23. ZAROXOLYN [Concomitant]
     Active Substance: METOLAZONE
     Dosage: 5 MG, 1X/DAY (BEFORE AM LASIX)
     Route: 048
     Dates: start: 20150409
  24. WARFARIN [Concomitant]
     Active Substance: WARFARIN
     Dosage: UNK, 1X/DAY (1 AND 1/2 TABLET)
     Route: 048
  25. NITROSTAT [Concomitant]
     Active Substance: NITROGLYCERIN
     Indication: Chest pain
     Dosage: 0.4 MG, AS NEEDED
     Route: 060
  26. PROAIR HFA [Concomitant]
     Active Substance: ALBUTEROL SULFATE
     Dosage: UNK, AS NEEDED (AS 2 PUFFS AS NEEDED INHALATION EVERY 4 HRS)
     Route: 045
  27. PROTONIX [Concomitant]
     Active Substance: PANTOPRAZOLE SODIUM
     Dosage: UNK
  28. CYCLOBENZAPRINE [Concomitant]
     Active Substance: CYCLOBENZAPRINE
     Dosage: 5 MG, 3X/DAY
     Route: 048
     Dates: start: 20150603
  29. PANTOPRAZOLE SODIUM [Concomitant]
     Active Substance: PANTOPRAZOLE SODIUM
     Dosage: 40 MG, 1X/DAY
     Route: 048
     Dates: start: 20150310
  30. INFLUENZA VIRUS VACCINE [Concomitant]
     Active Substance: INFLUENZA VIRUS VACCINE
     Dosage: 0.5 ML
     Route: 023
     Dates: start: 20151015
  31. MACROBID [Concomitant]
     Active Substance: NITROFURANTOIN\NITROFURANTOIN MONOHYDRATE
     Dosage: 100 MG, 2X/DAY (WITH FOOD ORALLY EVERY 12 HRS )
     Route: 048
     Dates: start: 20161021
  32. PREDNISONE [Concomitant]
     Active Substance: PREDNISONE
     Dosage: 20 MG, 2X/DAY (BID X 5 DAYS AND THEN ONCE A DAY X 5 DAYS)
     Route: 048
     Dates: start: 20161005
  33. PREDNISONE [Concomitant]
     Active Substance: PREDNISONE
     Dosage: 20 MG, 1X/DAY (BID X 5 DAYS AND THEN ONCE A DAY X 5 DAYS)
     Route: 048
  34. RECLAST [Concomitant]
     Active Substance: ZOLEDRONIC ACID
     Dosage: UNK (5 MG/100 ML SOLUTION, AS DIRECTED)
     Route: 042
     Dates: start: 20160804
  35. ALBUTEROL SULFATE [Concomitant]
     Active Substance: ALBUTEROL SULFATE
     Dosage: 3 ML, 4X/DAY (EVERY 6 HOURS )
     Route: 055
     Dates: start: 20160517
  36. PROMETHAZINE HYDROCHLORIDE [Concomitant]
     Active Substance: PROMETHAZINE HYDROCHLORIDE
     Dosage: 12.5 MG, AS NEEDED (EVERY 6 HOURS)
     Route: 048
     Dates: start: 20160226
  37. AMBIEN [Concomitant]
     Active Substance: ZOLPIDEM TARTRATE
     Dosage: 5 MG, 1X/DAY (AT BEDTIME)
     Route: 048
     Dates: start: 20160222

REACTIONS (9)
  - Cellulitis [Recovered/Resolved]
  - Disease progression [Recovered/Resolved]
  - Skin exfoliation [Recovered/Resolved]
  - Erythema [Recovered/Resolved]
  - Swelling [Recovered/Resolved]
  - Pain [Recovered/Resolved]
  - Off label use [Unknown]
  - Anxiety [Unknown]
  - Sinusitis [Unknown]

NARRATIVE: CASE EVENT DATE: 20140917
